FAERS Safety Report 4329855-6 (Version None)
Quarter: 2004Q2

REPORT INFORMATION
  Report Type: 
  Country: None (occurrence: None)
  Receive Date: 20040401
  Receipt Date: 20040323
  Transmission Date: 20050107
  Serious: Yes (Other)
  Sender: FDA-Public Use
  Company Number: GB-BRISTOL-MYERS SQUIBB COMPANY-12539706

PATIENT
  Age: 64 Year
  Sex: Male

DRUGS (9)
  1. APROVEL [Suspect]
     Indication: HYPERTENSION
     Dosage: DOSE REDUCED TO 50 MG
     Route: 048
  2. NEBILET [Interacting]
     Indication: HYPERTENSION
     Dosage: 5 MG DAILY AS NEEDED,STOPPED (DATE UNKNOWN) AND RESTARTED IN OCT-2003.
     Route: 048
     Dates: start: 20020117
  3. LACIDIPINE [Interacting]
     Indication: HYPERTENSION
     Route: 048
  4. NAPROXEN [Concomitant]
     Dosage: 250-500 MG TWICE DAILY
     Route: 048
     Dates: start: 20020101
  5. THYROID TAB [Concomitant]
     Route: 048
  6. SILDENAFIL [Concomitant]
     Route: 048
  7. SIMVASTATIN [Concomitant]
     Route: 048
     Dates: start: 20020509
  8. DICLOFENAC SODIUM [Concomitant]
     Route: 048
     Dates: start: 20020509
  9. COVERSYL [Concomitant]
     Route: 048
     Dates: start: 20020503

REACTIONS (8)
  - BRADYCARDIA [None]
  - DRUG INTERACTION [None]
  - HEADACHE [None]
  - HYPOTENSION [None]
  - KERATOCONJUNCTIVITIS SICCA [None]
  - LOSS OF CONSCIOUSNESS [None]
  - RETINAL VEIN OCCLUSION [None]
  - VISUAL DISTURBANCE [None]
